FAERS Safety Report 5187316-9 (Version None)
Quarter: 2006Q4

REPORT INFORMATION
  Report Type: 
  Country: None (occurrence: None)
  Receive Date: 20061213
  Receipt Date: 20061130
  Transmission Date: 20070319
  Serious: Yes (Other)
  Sender: FDA-Public Use
  Company Number: 15279

PATIENT
  Sex: Female

DRUGS (1)
  1. MORPHINE [Suspect]

REACTIONS (7)
  - ACCIDENTAL OVERDOSE [None]
  - APGAR SCORE LOW [None]
  - DRUG EXPOSURE DURING PREGNANCY [None]
  - NEONATAL DISORDER [None]
  - PHARMACEUTICAL PRODUCT COMPLAINT [None]
  - UNRESPONSIVE TO STIMULI [None]
  - WRONG DRUG ADMINISTERED [None]
